FAERS Safety Report 7931320-1 (Version None)
Quarter: 2011Q4

REPORT INFORMATION
  Report Type: 
  Country: None (occurrence: None)
  Receive Date: 20111121
  Receipt Date: 20110815
  Transmission Date: 20120403
  Serious: No
  Sender: FDA-Public Use
  Company Number: US-BAYER-2011-076731

PATIENT
  Sex: Male
  Weight: 100 kg

DRUGS (5)
  1. ANTIHYPERTENSIVES [Concomitant]
  2. ACTOS [Concomitant]
  3. PRILOSEC [Concomitant]
  4. DEPOT-INSULIN [INSULIN INJECTION, ISOPHANE] [Concomitant]
  5. ALEVE (CAPLET) [Suspect]
     Indication: BACK PAIN
     Route: 048

REACTIONS (1)
  - NO ADVERSE EVENT [None]
